FAERS Safety Report 10457097 (Version 1)
Quarter: 2014Q3

REPORT INFORMATION
  Report Type: Spontaneous
  Country: US (occurrence: None)
  Receive Date: 20140915
  Receipt Date: 20140915
  Transmission Date: 20150326
  Serious: Yes (Other)
  Sender: FDA-Public Use
  Company Number: None

PATIENT
  Age: 67 Year
  Sex: Female
  Weight: 74.84 kg

DRUGS (5)
  1. LEFLUNOMIDE GENERIC (FOR ARAUA) HERITAGE RPH [Suspect]
     Active Substance: LEFLUNOMIDE
     Indication: RHEUMATOID ARTHRITIS
     Dosage: 20 MG, 1 PILL ONCE A DAY BY MOUTH
     Route: 048
     Dates: start: 20140529, end: 20140813
  2. HYDROXYCHLOR [Concomitant]
     Active Substance: HYDROXYCHLOROQUINE
  3. FISH OIL [Concomitant]
     Active Substance: FISH OIL
  4. LISINOPRIL. [Concomitant]
     Active Substance: LISINOPRIL
  5. FOLIC ACID. [Concomitant]
     Active Substance: FOLIC ACID

REACTIONS (4)
  - Oral mucosal blistering [None]
  - Blister [None]
  - Mouth ulceration [None]
  - Pain [None]

NARRATIVE: CASE EVENT DATE: 20140621
